FAERS Safety Report 11198210 (Version 2)
Quarter: 2015Q3

REPORT INFORMATION
  Report Type: Report from Study
  Country: US (occurrence: US)
  Receive Date: 20150618
  Receipt Date: 20150703
  Transmission Date: 20151125
  Serious: No
  Sender: FDA-Public Use
  Company Number: US-AMGEN-USASP2015058343

PATIENT
  Age: 70 Year
  Sex: Female

DRUGS (1)
  1. ENBREL [Suspect]
     Active Substance: ETANERCEPT
     Indication: RHEUMATOID ARTHRITIS
     Dosage: 50 MG, QWK (ONCE WEEK)
     Route: 065
     Dates: start: 20150528

REACTIONS (6)
  - Asthma [Not Recovered/Not Resolved]
  - Cough [Not Recovered/Not Resolved]
  - No therapeutic response [Not Recovered/Not Resolved]
  - Wheezing [Not Recovered/Not Resolved]
  - Chest discomfort [Not Recovered/Not Resolved]
  - Device difficult to use [Not Recovered/Not Resolved]

NARRATIVE: CASE EVENT DATE: 2015
